FAERS Safety Report 24644656 (Version 4)
Quarter: 2025Q3

REPORT INFORMATION
  Report Type: Spontaneous
  Country: JP (occurrence: JP)
  Receive Date: 20241121
  Receipt Date: 20250906
  Transmission Date: 20251020
  Serious: Yes (Death, Hospitalization, Other)
  Sender: UNITED THERAPEUTICS
  Company Number: JP-UNITED THERAPEUTICS-UNT-2024-033033

PATIENT
  Age: 73 Year
  Sex: Male
  Weight: 63 kg

DRUGS (9)
  1. TREPROSTINIL [Suspect]
     Active Substance: TREPROSTINIL
     Indication: Pulmonary hypertension
  2. TREPROSTINIL [Suspect]
     Active Substance: TREPROSTINIL
     Indication: Interstitial lung disease
     Dosage: 60 ?G, QID
     Dates: start: 20241007, end: 20250725
  3. ELIQUIS [Concomitant]
     Active Substance: APIXABAN
     Indication: Pulmonary hypertension
     Dosage: 5 MG, Q12H
     Dates: start: 20241111, end: 20250725
  4. ELIQUIS [Concomitant]
     Active Substance: APIXABAN
     Indication: Interstitial lung disease
  5. REVATIO [Concomitant]
     Active Substance: SILDENAFIL CITRATE
     Indication: Pulmonary hypertension
     Dosage: 20 MG, Q8H
     Dates: start: 20201014, end: 20250725
  6. REVATIO [Concomitant]
     Active Substance: SILDENAFIL CITRATE
     Indication: Interstitial lung disease
  7. OPSUMIT [Concomitant]
     Active Substance: MACITENTAN
     Indication: Pulmonary hypertension
     Dosage: 5 MG, QD
     Dates: start: 20220824, end: 20250725
  8. OPSUMIT [Concomitant]
     Active Substance: MACITENTAN
     Indication: Interstitial lung disease
  9. Alosenn [Concomitant]
     Indication: Constipation
     Dosage: 0.5 MG, QD
     Dates: start: 20221024, end: 20250725

REACTIONS (5)
  - Cardiac failure [Fatal]
  - Combined pulmonary fibrosis and emphysema [Fatal]
  - Investigation abnormal [Unknown]
  - Hyperuricaemia [Unknown]
  - Overdose [Unknown]

NARRATIVE: CASE EVENT DATE: 20241007
